FAERS Safety Report 5855803-3 (Version None)
Quarter: 2008Q3

REPORT INFORMATION
  Report Type: 
  Country: None (occurrence: None)
  Receive Date: 20080821
  Receipt Date: 20080821
  Transmission Date: 20090109
  Serious: Yes (Life-Threatening)
  Sender: FDA-Public Use
  Company Number: None

PATIENT
  Age: 48 Year
  Sex: Female
  Weight: 79.3795 kg

DRUGS (2)
  1. CIPRO [Suspect]
     Indication: ENDODONTIC PROCEDURE
     Dosage: 7-14 DAYS
     Dates: start: 20030125, end: 20070323
  2. CIPRO [Suspect]
     Indication: SINUS DISORDER
     Dosage: 7-14 DAYS
     Dates: start: 20030125, end: 20070323

REACTIONS (1)
  - TENDONITIS [None]
